FAERS Safety Report 4790186-1 (Version None)
Quarter: 2005Q4

REPORT INFORMATION
  Report Type: 
  Country: None (occurrence: None)
  Receive Date: 20051006
  Receipt Date: 20050511
  Transmission Date: 20060501
  Serious: Yes (Hospitalization, Other)
  Sender: FDA-Public Use
  Company Number: PHBS2005JP06676

PATIENT
  Age: 78 Year
  Sex: Male

DRUGS (5)
  1. STEROIDS NOS [Suspect]
     Indication: INTERSTITIAL LUNG DISEASE
     Dosage: PULSE THERAPY
     Route: 065
     Dates: start: 20040801
  2. PREDNISOLONE [Suspect]
     Indication: HENOCH-SCHONLEIN PURPURA
     Dosage: 60 MG/D
     Dates: start: 20040804
  3. PREDNISOLONE [Suspect]
     Dosage: 30 MG/D
     Dates: start: 20040522
  4. RIMACTANE [Suspect]
     Indication: PULMONARY TUBERCULOSIS
  5. NEORAL [Suspect]
     Indication: INTERSTITIAL LUNG DISEASE
     Dosage: 150 MG/D
     Route: 065
     Dates: start: 20040804

REACTIONS (5)
  - ABDOMINAL PAIN [None]
  - ILEUS [None]
  - PRODUCTIVE COUGH [None]
  - PULMONARY TUBERCULOSIS [None]
  - PYREXIA [None]
